FAERS Safety Report 16636589 (Version 1)
Quarter: 2019Q3

REPORT INFORMATION
  Report Type: Spontaneous
  Country: US (occurrence: US)
  Receive Date: 20190613
  Receipt Date: 20190613
  Transmission Date: 20191004
  Serious: No
  Sender: FDA-Public Use
  Company Number: None

PATIENT
  Age: 88 Year
  Sex: Female
  Weight: 48.08 kg

DRUGS (2)
  1. TYMLOS [Suspect]
     Active Substance: ABALOPARATIDE
     Indication: BONE DENSITY ABNORMAL
     Route: 058
     Dates: start: 201811
  2. TYMLOS [Suspect]
     Active Substance: ABALOPARATIDE
     Indication: SENILE OSTEOPOROSIS
     Route: 058
     Dates: start: 201811

REACTIONS (6)
  - Condition aggravated [None]
  - Orthostatic hypotension [None]
  - Hypertension [None]
  - Joint swelling [None]
  - Dizziness [None]
  - Incontinence [None]
